FAERS Safety Report 21864689 (Version 1)
Quarter: 2023Q1

REPORT INFORMATION
  Report Type: Spontaneous
  Country: US (occurrence: US)
  Receive Date: 20230116
  Receipt Date: 20230116
  Transmission Date: 20230418
  Serious: No
  Sender: FDA-Public Use
  Company Number: US-drreddys-SPO/USA/22/0159087

PATIENT
  Age: 71 Year
  Sex: Female

DRUGS (13)
  1. LENALIDOMIDE [Suspect]
     Active Substance: LENALIDOMIDE
     Indication: Plasma cell myeloma
     Dosage: BY MOUTH EVERY DAY FOR 21 DAYS, THEN REST 1 WEEK AND REPEAT
     Route: 048
     Dates: start: 20221026
  2. Valsartan Tablets USP 40 mg, 80 mg, 160 mg, and 320 mg [Concomitant]
     Indication: Product used for unknown indication
  3. PANTOPRAZOLE SODIUM [Concomitant]
     Active Substance: PANTOPRAZOLE SODIUM
     Indication: Product used for unknown indication
  4. CLONIDINE HC TAB 0.3MG [Concomitant]
     Indication: Product used for unknown indication
  5. ACYCLOVIR TAB 800MG [Concomitant]
     Indication: Product used for unknown indication
  6. ASPIRIN TAB 325MG [Concomitant]
     Indication: Product used for unknown indication
  7. CALCIUM + D TAB 315-200MG [Concomitant]
     Indication: Product used for unknown indication
     Dosage: 315-200MG
  8. DEXAMETHASONE [Concomitant]
     Active Substance: DEXAMETHASONE
     Indication: Product used for unknown indication
  9. GABAPENTIN TAB 800MG [Concomitant]
     Indication: Product used for unknown indication
  10. POTASSIUM TAB 99MG [Concomitant]
     Indication: Product used for unknown indication
  11. TORSEMIDE TAB 100MG [Concomitant]
     Indication: Product used for unknown indication
  12. VYTORIN AB 10-20MG [Concomitant]
     Indication: Product used for unknown indication
     Dosage: 10-20MG
  13. AMLODIPINE BESYLATE [Concomitant]
     Active Substance: AMLODIPINE BESYLATE
     Indication: Product used for unknown indication
     Dosage: 1MG/ML

REACTIONS (1)
  - Full blood count decreased [Recovered/Resolved]
